FAERS Safety Report 6706980-3 (Version None)
Quarter: 2010Q2

REPORT INFORMATION
  Report Type: 
  Country: None (occurrence: None)
  Receive Date: 20100503
  Receipt Date: 20100421
  Transmission Date: 20101027
  Serious: Yes (Hospitalization, Other)
  Sender: FDA-Public Use
  Company Number: US-ELI_LILLY_AND_COMPANY-US201004006719

PATIENT
  Age: 58 Year
  Sex: Female

DRUGS (6)
  1. GEMZAR [Suspect]
     Indication: PANCREATIC CARCINOMA
     Dosage: 1650 D/F, EVERY 7 DAYS
     Dates: start: 20100305
  2. PRAVACHOL [Concomitant]
  3. NEXIUM [Concomitant]
  4. ATIVAN [Concomitant]
  5. CALTRATE                           /00108001/ [Concomitant]
  6. ESTER-C [Concomitant]

REACTIONS (2)
  - DIZZINESS [None]
  - NEUROPATHY PERIPHERAL [None]
